FAERS Safety Report 24196034 (Version 1)
Quarter: 2024Q3

REPORT INFORMATION
  Report Type: Spontaneous
  Country: PT (occurrence: PT)
  Receive Date: 20240809
  Receipt Date: 20240809
  Transmission Date: 20241017
  Serious: Yes (Hospitalization)
  Sender: BAUSCH AND LOMB
  Company Number: PT-MLMSERVICE-20240724-PI141748-00117-1

PATIENT
  Age: 5 Decade
  Sex: Male

DRUGS (25)
  1. DEXAMETHASONE [Suspect]
     Active Substance: DEXAMETHASONE
     Indication: Diffuse large B-cell lymphoma
     Route: 042
  2. PREDNISOLONE [Suspect]
     Active Substance: PREDNISOLONE
     Indication: Diffuse large B-cell lymphoma
     Dosage: R-CHOMP
     Route: 048
  3. PREDNISOLONE [Suspect]
     Active Substance: PREDNISOLONE
     Dosage: R-CHOMP (RESUMED)
     Route: 048
  4. RISPERIDONE [Concomitant]
     Active Substance: RISPERIDONE
     Indication: Psychomotor hyperactivity
  5. RISPERIDONE [Concomitant]
     Active Substance: RISPERIDONE
     Indication: Insomnia
  6. RISPERIDONE [Concomitant]
     Active Substance: RISPERIDONE
     Indication: Delusion
  7. LORAZEPAM [Concomitant]
     Active Substance: LORAZEPAM
     Indication: Psychomotor hyperactivity
     Dosage: PRN
  8. LORAZEPAM [Concomitant]
     Active Substance: LORAZEPAM
     Indication: Insomnia
  9. LORAZEPAM [Concomitant]
     Active Substance: LORAZEPAM
     Indication: Delusion
  10. PALIPERIDONE [Concomitant]
     Active Substance: PALIPERIDONE
     Indication: Anxiety
  11. PALIPERIDONE [Concomitant]
     Active Substance: PALIPERIDONE
     Indication: Insomnia
     Dosage: UP-TITRATION UNTIL 15 MG/DAY
  12. PALIPERIDONE [Concomitant]
     Active Substance: PALIPERIDONE
     Indication: Tachyphrenia
     Dosage: PROGRESSIVELY TAPERING OVER 1.5 MONTHS UNTIL 3 MG/DAY
  13. PALIPERIDONE [Concomitant]
     Active Substance: PALIPERIDONE
     Indication: Affect lability
  14. PALIPERIDONE [Concomitant]
     Active Substance: PALIPERIDONE
     Indication: Grandiosity
  15. PALIPERIDONE [Concomitant]
     Active Substance: PALIPERIDONE
     Indication: Cyclothymic disorder
  16. RITUXIMAB [Concomitant]
     Active Substance: RITUXIMAB
     Indication: Diffuse large B-cell lymphoma
     Dosage: R-CHOMP
  17. CYCLOPHOSPHAMIDE [Concomitant]
     Active Substance: CYCLOPHOSPHAMIDE
     Indication: Diffuse large B-cell lymphoma
     Dosage: R-CHOMP
  18. DOXORUBICIN [Concomitant]
     Active Substance: DOXORUBICIN
     Indication: Diffuse large B-cell lymphoma
     Dosage: R-CHOMP
  19. VINCRISTINE [Concomitant]
     Active Substance: VINCRISTINE
     Indication: Diffuse large B-cell lymphoma
     Dosage: R-CHOMP
  20. METHOTREXATE [Concomitant]
     Active Substance: METHOTREXATE
     Indication: Diffuse large B-cell lymphoma
     Dosage: R-CHOMP
  21. PAROXETINE [Concomitant]
     Active Substance: PAROXETINE
     Indication: Depressed mood
  22. PAROXETINE [Concomitant]
     Active Substance: PAROXETINE
     Indication: Apathy
  23. PAROXETINE [Concomitant]
     Active Substance: PAROXETINE
     Indication: Anhedonia
  24. PAROXETINE [Concomitant]
     Active Substance: PAROXETINE
     Indication: Terminal insomnia
  25. PAROXETINE [Concomitant]
     Active Substance: PAROXETINE
     Indication: Decreased appetite

REACTIONS (1)
  - Substance-induced psychotic disorder [Recovered/Resolved]
